FAERS Safety Report 7569708-3 (Version None)
Quarter: 2011Q2

REPORT INFORMATION
  Report Type: 
  Country: None (occurrence: None)
  Receive Date: 20110624
  Receipt Date: 20110621
  Transmission Date: 20111010
  Serious: No
  Sender: FDA-Public Use
  Company Number: US-PFIZER INC-2011118131

PATIENT

DRUGS (1)
  1. DEPO-MEDROL [Suspect]
     Dosage: 80MG/ML, ONCE
     Route: 030

REACTIONS (2)
  - RASH [None]
  - HYPERHIDROSIS [None]
